FAERS Safety Report 11541377 (Version 1)
Quarter: 2015Q3

REPORT INFORMATION
  Report Type: Spontaneous
  Country: US (occurrence: US)
  Receive Date: 20150923
  Receipt Date: 20150923
  Transmission Date: 20151125
  Serious: No
  Sender: FDA-Public Use
  Company Number: US-KOWA-2014S1001206

PATIENT
  Age: 68 Year
  Sex: Male

DRUGS (4)
  1. LIVALO [Suspect]
     Active Substance: PITAVASTATIN CALCIUM
     Indication: BLOOD CHOLESTEROL INCREASED
     Dosage: 2 MG, TIW
     Route: 048
     Dates: start: 201405, end: 20140919
  2. LIVALO [Suspect]
     Active Substance: PITAVASTATIN CALCIUM
     Dosage: 1 MG, TIW
     Route: 048
     Dates: start: 201312, end: 201405
  3. TOPAMAX [Concomitant]
     Active Substance: TOPIRAMATE
     Dosage: 12.5 MG, UNK
  4. NIACIN. [Concomitant]
     Active Substance: NIACIN

REACTIONS (1)
  - Peripheral coldness [Recovered/Resolved]

NARRATIVE: CASE EVENT DATE: 201312
